FAERS Safety Report 7510184-4 (Version None)
Quarter: 2011Q2

REPORT INFORMATION
  Report Type: 
  Country: None (occurrence: None)
  Receive Date: 20110527
  Receipt Date: 20110516
  Transmission Date: 20111010
  Serious: Yes (Death, Hospitalization, Other)
  Sender: FDA-Public Use
  Company Number: US-UCBSA-028872

PATIENT
  Sex: Male
  Weight: 94.1 kg

DRUGS (9)
  1. PERCOCET [Concomitant]
     Dosage: 5/325 1
  2. MERCAPTOPURINE [Concomitant]
     Indication: CROHN'S DISEASE
     Route: 048
     Dates: start: 20050101, end: 20110316
  3. CHOLESTYRAMINE [Concomitant]
  4. CHEMOTHERAPY [Concomitant]
  5. OXYCODONE HCL [Concomitant]
  6. OXYCONTIN [Concomitant]
     Dosage: 20
  7. CIMZIA [Suspect]
     Indication: CROHN'S DISEASE
     Route: 058
     Dates: start: 20091113
  8. ATIVAN [Concomitant]
  9. ROXANOL [Concomitant]

REACTIONS (1)
  - METASTATIC MALIGNANT MELANOMA [None]
